FAERS Safety Report 17103305 (Version 1)
Quarter: 2019Q4

REPORT INFORMATION
  Report Type: Spontaneous
  Country: US (occurrence: US)
  Receive Date: 20191202
  Receipt Date: 20191202
  Transmission Date: 20200122
  Serious: Yes (Other)
  Sender: FDA-Public Use
  Company Number: None

PATIENT
  Age: 51 Year
  Sex: Female
  Weight: 116.1 kg

DRUGS (13)
  1. PLAQUENIL [Concomitant]
     Active Substance: HYDROXYCHLOROQUINE SULFATE
  2. SYMBICORT [Concomitant]
     Active Substance: BUDESONIDE\FORMOTEROL FUMARATE DIHYDRATE
  3. PULMICORT TURBUHALER [Concomitant]
     Active Substance: BUDESONIDE
  4. VENTOLIN [Concomitant]
     Active Substance: ALBUTEROL SULFATE
  5. PREVACID [Concomitant]
     Active Substance: LANSOPRAZOLE
  6. NP THYROID [Concomitant]
     Active Substance: LEVOTHYROXINE\LIOTHYRONINE
  7. SINGULAIR [Concomitant]
     Active Substance: MONTELUKAST SODIUM
  8. GUMMY FIBER [Concomitant]
  9. THYROID [Suspect]
     Active Substance: LEVOTHYROXINE\LIOTHYRONINE
     Indication: THYROID HORMONE REPLACEMENT THERAPY
     Dosage: ?          QUANTITY:1 TABLET(S);?
     Route: 048
     Dates: start: 20191110, end: 20191202
  10. ANTACIDS [Concomitant]
     Active Substance: UNSPECIFIED INGREDIENT
  11. PROCARDIA [Concomitant]
     Active Substance: NIFEDIPINE
  12. R-ALA [Concomitant]
  13. MULTIVITAMINS [Concomitant]
     Active Substance: VITAMINS

REACTIONS (6)
  - Product odour abnormal [None]
  - Asthenia [None]
  - Dyspepsia [None]
  - Hypersomnia [None]
  - Nausea [None]
  - Fatigue [None]

NARRATIVE: CASE EVENT DATE: 20191115
